FAERS Safety Report 13430218 (Version 1)
Quarter: 2017Q2

REPORT INFORMATION
  Report Type: Spontaneous
  Country: ES (occurrence: EC)
  Receive Date: 20170412
  Receipt Date: 20170412
  Transmission Date: 20170830
  Serious: Yes (Hospitalization)
  Sender: FDA-Public Use
  Company Number: ES-ASPEN PHARMA TRADING LIMITED US-AG-2017-002578

PATIENT
  Age: 4 Year
  Sex: Female

DRUGS (6)
  1. FORTECORTIN [Suspect]
     Active Substance: DEXAMETHASONE
     Indication: ACUTE LYMPHOCYTIC LEUKAEMIA
     Route: 048
     Dates: start: 20170118, end: 20170210
  2. SEPTRIM PEDIATRICO [Concomitant]
     Indication: ANTIBIOTIC PROPHYLAXIS
     Route: 048
     Dates: start: 20161031
  3. TIOGUANINE [Suspect]
     Active Substance: THIOGUANINE ANHYDROUS
     Indication: ACUTE LYMPHOCYTIC LEUKAEMIA
     Dosage: ASPEN 40 MG COMPRIMIDOS, 25 COMP
     Route: 048
     Dates: start: 20170201, end: 20170214
  4. CYTARABINE. [Suspect]
     Active Substance: CYTARABINE
     Indication: PRODUCT USED FOR UNKNOWN INDICATION
     Route: 042
     Dates: start: 20170203, end: 20170213
  5. ZOVIRAX 400 MG/5 ML [Concomitant]
     Indication: ANTIVIRAL PROPHYLAXIS
     Dosage: 400 MG/5 ML
     Route: 048
     Dates: start: 20161128
  6. HYDROCORTISONE. [Concomitant]
     Active Substance: HYDROCORTISONE
     Indication: PRODUCT USED FOR UNKNOWN INDICATION
     Route: 048
     Dates: start: 20170206, end: 20170216

REACTIONS (2)
  - Pneumonia influenzal [Recovered/Resolved]
  - Febrile neutropenia [Recovered/Resolved]

NARRATIVE: CASE EVENT DATE: 20170219
